FAERS Safety Report 19148802 (Version 1)
Quarter: 2021Q2

REPORT INFORMATION
  Report Type: Spontaneous
  Country: CA (occurrence: CA)
  Receive Date: 20210416
  Receipt Date: 20210416
  Transmission Date: 20210717
  Serious: Yes (Life-Threatening, Hospitalization, Other)
  Sender: FDA-Public Use
  Company Number: CA-ANIPHARMA-2021-CA-000457

PATIENT
  Age: 65 Year
  Sex: Male

DRUGS (29)
  1. CEFUROXIME. [Suspect]
     Active Substance: CEFUROXIME
     Dosage: 1 DF BID
     Route: 065
  2. UMECLIDINIUM BROMIDE+VILANTEROL TRIFENATATE [Suspect]
     Active Substance: UMECLIDINIUM BROMIDE\VILANTEROL TRIFENATATE
     Dosage: 1 DF DAILY
     Route: 065
  3. VITAMIN D [Suspect]
     Active Substance: VITAMIN D NOS
     Dosage: UNKNOWN DOSE AND FREQUENCY
     Route: 065
  4. METFORMIN HYDROCHLORIDE. [Suspect]
     Active Substance: METFORMIN HYDROCHLORIDE
     Dosage: 2 DF BID
     Route: 065
  5. BETAMETHASONE+CLOTRIMAZOLE [Suspect]
     Active Substance: BETAMETHASONE\CLOTRIMAZOLE
     Dosage: UNKNOWN DOSE AND FREQUENCY
     Route: 065
  6. DOMPERIDONE MALEATE [Suspect]
     Active Substance: DOMPERIDONE MALEATE
     Dosage: 1 DF BID
     Route: 065
  7. INSULIN GLARGINE [Suspect]
     Active Substance: INSULIN GLARGINE
     Dosage: UNKNOWN DOSE EVERY DAY
     Route: 058
  8. LEVOFLOXACIN. [Suspect]
     Active Substance: LEVOFLOXACIN
     Dosage: 3 DF DAILY
     Route: 065
  9. SULFATRIM [Suspect]
     Active Substance: SULFAMETHOXAZOLE\TRIMETHOPRIM
     Dosage: UNKNOWN DOSE AND FREQUENCY
     Route: 065
  10. AZITHROMYCIN ANHYDROUS. [Suspect]
     Active Substance: AZITHROMYCIN ANHYDROUS
     Dosage: 2 DF DAILY
     Route: 065
  11. FUROSEMIDE. [Suspect]
     Active Substance: FUROSEMIDE
     Dosage: UNKNOWN DOSE EVERY DAY
     Route: 065
  12. TECTA [Suspect]
     Active Substance: PANTOPRAZOLE MAGNESIUM
     Dosage: UNKNOWN DOSE TWO TIMES A DAY
     Route: 065
  13. SENNOSIDE [Suspect]
     Active Substance: SENNOSIDES
     Dosage: UNKNOWN DOSE AND FREQUENCY
     Route: 065
  14. SEPTRA [Concomitant]
     Active Substance: SULFAMETHOXAZOLE\TRIMETHOPRIM
     Dosage: UNKNOWN DOSE AND FREQUENCY
     Route: 065
  15. SALBUTAMOL [Suspect]
     Active Substance: ALBUTEROL
     Dosage: UNKNOWN DOSE AND FREQUENCY
     Route: 065
  16. TRELEGY ELLIPTA [Suspect]
     Active Substance: FLUTICASONE FUROATE\UMECLIDINIUM BROMIDE\VILANTEROL TRIFENATATE
     Dosage: 1 DF DAILY
     Route: 065
  17. PANTOPRAZOLE [Suspect]
     Active Substance: PANTOPRAZOLE
     Dosage: 1 DF BID
     Route: 065
  18. CALCIUM CARBONATE. [Suspect]
     Active Substance: CALCIUM CARBONATE
     Dosage: 1 DF DAILY
     Route: 065
  19. FLOMAX [Suspect]
     Active Substance: TAMSULOSIN HYDROCHLORIDE
     Dosage: UNKNOWN DOSE AND FREQUENCY
     Route: 065
  20. GLUCAGON. [Suspect]
     Active Substance: GLUCAGON
     Dosage: UNKNOWN DOSE AND FREQUENCY
     Route: 065
  21. CANDESARTAN CILEXETIL. [Suspect]
     Active Substance: CANDESARTAN CILEXETIL
     Indication: PRODUCT USED FOR UNKNOWN INDICATION
     Dosage: 1 DF DAILY
     Route: 048
  22. IMURAN [Suspect]
     Active Substance: AZATHIOPRINE
     Dosage: UNKNOWN DOSE AND FREQUENCY
     Route: 065
  23. LASIX [Suspect]
     Active Substance: FUROSEMIDE
     Dosage: UNKNOWN DOSE AND FREQUENCY
     Route: 065
  24. MAGNESIUM OXIDE. [Suspect]
     Active Substance: MAGNESIUM OXIDE
     Dosage: 2 DF BID
     Route: 065
  25. PREDNISONE. [Suspect]
     Active Substance: PREDNISONE
     Dosage: UNKNOWN DOSE AND FREQUENCY / DOSE TEXT: UNKNOWN DOSE AND FREQUENCY / 80 MG DAILY
     Route: 065
  26. TAMSULOSIN [Suspect]
     Active Substance: TAMSULOSIN
     Dosage: 1 DF DAILY
     Route: 065
  27. SALBUTAMOL SULFATE [Suspect]
     Active Substance: ALBUTEROL SULFATE
     Dosage: UNKNOWN DOSE AND FREQUENCY
     Route: 065
  28. ALENDRONATE [Suspect]
     Active Substance: ALENDRONATE SODIUM
     Dosage: 1 DF WEEK
     Route: 065
  29. AZATHIOPRINE. [Suspect]
     Active Substance: AZATHIOPRINE
     Dosage: 100 MG QD / DOSE TEXT: UNKNOWN DOSE AND FREQUENCY
     Route: 065

REACTIONS (18)
  - Neurological symptom [Unknown]
  - Asthma [Unknown]
  - Pain in extremity [Unknown]
  - Wheezing [Unknown]
  - Obstructive airways disorder [Unknown]
  - Respiratory symptom [Unknown]
  - Haemoptysis [Unknown]
  - Lung disorder [Unknown]
  - Pulmonary fibrosis [Unknown]
  - Vasculitis [Unknown]
  - Dyspnoea [Unknown]
  - Loss of personal independence in daily activities [Unknown]
  - Pulmonary alveolar haemorrhage [Unknown]
  - Therapeutic product effect incomplete [Unknown]
  - Condition aggravated [Unknown]
  - Neuritis [Unknown]
  - Pulmonary vasculitis [Unknown]
  - Sleep disorder due to a general medical condition [Unknown]
